FAERS Safety Report 19697488 (Version 1)
Quarter: 2021Q3

REPORT INFORMATION
  Report Type: Report from Study
  Country: FR (occurrence: FR)
  Receive Date: 20210812
  Receipt Date: 20210812
  Transmission Date: 20211014
  Serious: Yes (Other)
  Sender: FDA-Public Use
  Company Number: FR-JNJFOC-20210753454

PATIENT

DRUGS (5)
  1. TREMFYA [Suspect]
     Active Substance: GUSELKUMAB
     Indication: PSORIASIS
     Route: 065
  2. REMICADE [Suspect]
     Active Substance: INFLIXIMAB
     Indication: PSORIASIS
     Route: 042
  3. STELARA [Suspect]
     Active Substance: USTEKINUMAB
     Indication: PSORIASIS
     Route: 058
  4. TREMFYA [Suspect]
     Active Substance: GUSELKUMAB
  5. TREMFYA [Suspect]
     Active Substance: GUSELKUMAB

REACTIONS (4)
  - Infection [Unknown]
  - Pneumonia [Unknown]
  - Skin infection [Unknown]
  - Gastrointestinal infection [Unknown]
